FAERS Safety Report 9753661 (Version 1)
Quarter: 2013Q4

REPORT INFORMATION
  Report Type: Spontaneous
  Country: US (occurrence: None)
  Receive Date: 20131211
  Receipt Date: 20131211
  Transmission Date: 20140711
  Serious: Yes (Hospitalization)
  Sender: FDA-Public Use
  Company Number: 2013STPI000493

PATIENT
  Age: 27 Year
  Sex: Female

DRUGS (2)
  1. CYSTARAN [Suspect]
     Indication: CORNEAL DEPOSITS
     Route: 047
     Dates: start: 20130709
  2. PROCYSBI (CYSTEAMINE BITARTRATE) [Concomitant]

REACTIONS (1)
  - Nonspecific reaction [None]
